FAERS Safety Report 4449138-3 (Version None)
Quarter: 2004Q3

REPORT INFORMATION
  Report Type: 
  Country: None (occurrence: None)
  Receive Date: 20040910
  Receipt Date: 20040903
  Transmission Date: 20050211
  Serious: Yes (Hospitalization)
  Sender: FDA-Public Use
  Company Number: 2004PK01482

PATIENT
  Age: 46 Year
  Sex: Female
  Weight: 164 kg

DRUGS (7)
  1. SEROQUEL [Suspect]
     Indication: BIPOLAR DISORDER
     Dosage: 200 MG DAILY PO
     Route: 048
     Dates: start: 20040422, end: 20040422
  2. ZYPREXA [Suspect]
     Indication: BIPOLAR DISORDER
     Dosage: 10 MG DAILY PO
     Route: 048
  3. DALMADORM [Suspect]
     Indication: BIPOLAR DISORDER
     Dosage: 30 MG DAILY PO
     Route: 048
  4. TEMESTA [Suspect]
     Indication: BIPOLAR DISORDER
     Dosage: 2.5 MG TID PO
     Route: 048
  5. LITHIUM CARBONATE [Concomitant]
  6. DEPAKENE CHRONO [Concomitant]
  7. AKINETON [Concomitant]

REACTIONS (4)
  - DEPRESSED LEVEL OF CONSCIOUSNESS [None]
  - GAZE PALSY [None]
  - PUPIL FIXED [None]
  - RESPIRATORY FAILURE [None]
